FAERS Safety Report 14755836 (Version 2)
Quarter: 2018Q2

REPORT INFORMATION
  Report Type: Spontaneous
  Country: US (occurrence: US)
  Receive Date: 20180413
  Receipt Date: 20180510
  Transmission Date: 20180711
  Serious: No
  Sender: FDA-Public Use
  Company Number: US-PFIZER INC-2018148628

PATIENT
  Age: 63 Year
  Sex: Female
  Weight: 117.9 kg

DRUGS (1)
  1. IBUPROFEN. [Suspect]
     Active Substance: IBUPROFEN
     Dosage: 600 MG, UNK (200 MG 3 TABLETS EVERY 3-4 HOURS)

REACTIONS (2)
  - Overdose [Unknown]
  - Somnolence [Unknown]
